FAERS Safety Report 7272548-6 (Version None)
Quarter: 2011Q1

REPORT INFORMATION
  Report Type: 
  Country: None (occurrence: None)
  Receive Date: 20110203
  Receipt Date: 20110126
  Transmission Date: 20110831
  Serious: Yes (Hospitalization)
  Sender: FDA-Public Use
  Company Number: JP-ROCHE-756662

PATIENT
  Age: 70 Year
  Sex: Male

DRUGS (2)
  1. PEGASYS [Suspect]
     Indication: HEPATITIS C
     Route: 058
  2. WARFARIN SODIUM [Concomitant]
     Dosage: DOSAGE IS UNCERATIN.
     Route: 065

REACTIONS (1)
  - PULMONARY ALVEOLAR HAEMORRHAGE [None]
